FAERS Safety Report 5916702-1 (Version None)
Quarter: 2008Q4

REPORT INFORMATION
  Report Type: 
  Country: None (occurrence: None)
  Receive Date: 20081009
  Receipt Date: 20081001
  Transmission Date: 20090506
  Serious: Yes (Hospitalization)
  Sender: FDA-Public Use
  Company Number: 2008BI025018

PATIENT
  Age: 41 Year
  Sex: Female

DRUGS (4)
  1. TYSABRI [Suspect]
     Indication: MULTIPLE SCLEROSIS
     Dosage: 300 MG; QW; IV
     Route: 042
     Dates: start: 20080122, end: 20080902
  2. PREDNISONE TAB [Concomitant]
  3. COPAXONE [Concomitant]
  4. CELLCEPT [Concomitant]

REACTIONS (4)
  - DRUG DOSE OMISSION [None]
  - GENITAL HERPES [None]
  - MUMPS [None]
  - PAROTITIS [None]
